FAERS Safety Report 13233669 (Version 1)
Quarter: 2017Q1

REPORT INFORMATION
  Report Type: Spontaneous
  Country: FR (occurrence: FR)
  Receive Date: 20170215
  Receipt Date: 20170215
  Transmission Date: 20170428
  Serious: Yes (Other)
  Sender: FDA-Public Use
  Company Number: FR-ROCHE-1893562

PATIENT
  Age: 31 Year
  Sex: Female

DRUGS (1)
  1. XELODA [Suspect]
     Active Substance: CAPECITABINE
     Indication: BREAST CANCER METASTATIC
     Dosage: FOR 3 MONTHS
     Route: 065
     Dates: start: 2012

REACTIONS (3)
  - Wound [Unknown]
  - Skin reaction [Unknown]
  - Furuncle [Unknown]
